FAERS Safety Report 10240289 (Version 1)
Quarter: 2014Q2

REPORT INFORMATION
  Report Type: Report from Study
  Country: US (occurrence: US)
  Receive Date: 20140617
  Receipt Date: 20140617
  Transmission Date: 20141212
  Serious: Yes (Hospitalization)
  Sender: FDA-Public Use
  Company Number: PHEH2014US011974

PATIENT
  Age: 21 Year
  Sex: Female
  Weight: 48.4 kg

DRUGS (3)
  1. TOBI [Suspect]
     Dosage: UNK
     Route: 055
  2. TOBI PODHALER [Suspect]
     Indication: CYSTIC FIBROSIS
     Dosage: 112 MG TWICE A DAY
     Route: 055
  3. TOBI PODHALER [Suspect]
     Indication: PSEUDOMONAS INFECTION
     Dosage: 112 MG, TWICE A DAY (4 CAPSULES TWICE A DAY) FOR 28 DAYS
     Route: 055
     Dates: start: 20140519, end: 20140522

REACTIONS (4)
  - Condition aggravated [Unknown]
  - Cystic fibrosis [Unknown]
  - Bronchospasm [Recovering/Resolving]
  - Dyspnoea [Recovering/Resolving]
